FAERS Safety Report 5291790-7 (Version None)
Quarter: 2007Q2

REPORT INFORMATION
  Report Type: 
  Country: None (occurrence: None)
  Receive Date: 20070410
  Receipt Date: 20070328
  Transmission Date: 20071010
  Serious: Yes (Other)
  Sender: FDA-Public Use
  Company Number: PHHO2007GB05757

PATIENT
  Age: 32 Year
  Sex: Female

DRUGS (4)
  1. DINOPROSTONE [Suspect]
     Indication: LABOUR INDUCTION
     Dosage: 3 MG, BID
     Route: 067
     Dates: start: 20060404, end: 20060404
  2. BUPIVACAINE [Concomitant]
     Indication: EPIDURAL ANAESTHESIA
     Route: 008
     Dates: start: 20060405, end: 20060406
  3. FENTANYL [Concomitant]
     Indication: EPIDURAL ANAESTHESIA
     Route: 008
     Dates: start: 20060405, end: 20060406
  4. SYNTOCINON [Suspect]
     Indication: INDUCED LABOUR
     Dosage: 10 IU IN 500 ML SALINE
     Route: 042
     Dates: start: 20060405, end: 20060406

REACTIONS (3)
  - DRUG EXPOSURE DURING PREGNANCY [None]
  - FOETAL HEART RATE DECELERATION [None]
  - FORCEPS DELIVERY [None]
